FAERS Safety Report 10057097 (Version 3)
Quarter: 2014Q2

REPORT INFORMATION
  Report Type: Spontaneous
  Country: US (occurrence: US)
  Receive Date: 20140403
  Receipt Date: 20140515
  Transmission Date: 20141212
  Serious: Yes (Death, Other)
  Sender: FDA-Public Use
  Company Number: US-CELGENEUS-163-21880-13123573

PATIENT
  Age: 80 Year
  Sex: Male
  Weight: 70.82 kg

DRUGS (2)
  1. REVLIMID [Suspect]
     Indication: MYELODYSPLASTIC SYNDROME
     Dosage: 5 MILLIGRAM
     Route: 048
     Dates: start: 20130826, end: 20131118
  2. VIDAZA [Suspect]
     Indication: MYELODYSPLASTIC SYNDROME
     Route: 065
     Dates: start: 20130826, end: 20131118

REACTIONS (3)
  - Pancytopenia [Fatal]
  - Bone marrow failure [Fatal]
  - Acute myeloid leukaemia [Fatal]
